FAERS Safety Report 5733875-4 (Version None)
Quarter: 2008Q2

REPORT INFORMATION
  Report Type: 
  Country: None (occurrence: None)
  Receive Date: 20080509
  Receipt Date: 20080502
  Transmission Date: 20081010
  Serious: Yes (Hospitalization, Other)
  Sender: FDA-Public Use
  Company Number: IN-ELI_LILLY_AND_COMPANY-IN200708002202

PATIENT
  Sex: Male

DRUGS (4)
  1. HUMULIN R [Suspect]
     Indication: DIABETES MELLITUS
     Dosage: UNK, UNKNOWN
     Route: 058
  2. HUMULIN R [Suspect]
     Dosage: 20 U/MORNING, AFTERNOON AND EVENING
     Route: 058
  3. HUMULIN N [Suspect]
     Indication: DIABETES MELLITUS
     Dosage: UNK, UNKNOWN
     Route: 058
  4. HUMULIN N [Suspect]
     Dosage: 30 U/MORNING AND EVENING
     Route: 058

REACTIONS (3)
  - ABSCESS [None]
  - DRUG INEFFECTIVE [None]
  - HYDROCELE [None]
